FAERS Safety Report 6962535-7 (Version None)
Quarter: 2010Q3

REPORT INFORMATION
  Report Type: 
  Country: None (occurrence: None)
  Receive Date: 20100830
  Receipt Date: 20091012
  Transmission Date: 20110219
  Serious: Yes (Hospitalization, Other)
  Sender: FDA-Public Use
  Company Number: UK-2009-00327

PATIENT
  Age: 39 Year
  Sex: Male

DRUGS (9)
  1. LISINOPRIL [Suspect]
     Indication: HYPERTENSION
     Dosage: 5 MG (1 IN 1 D), ORAL
     Route: 048
     Dates: start: 20090217
  2. SIMVASTATIN [Suspect]
     Indication: BLOOD CHOLESTEROL INCREASED
     Dosage: ORAL
     Route: 048
     Dates: start: 20090217
  3. CLOMIPRAMINE HCL [Suspect]
     Indication: ANXIETY
     Dosage: ORAL
     Route: 048
     Dates: start: 20090217
  4. CLOZARIL [Suspect]
     Indication: SCHIZOPHRENIA
     Dosage: 600 MG, ORAL
     Route: 048
     Dates: start: 20030212
  5. HYOSCINE HBR HYT [Suspect]
     Indication: PRODUCT USED FOR UNKNOWN INDICATION
     Dates: start: 20090217
  6. METFORMIN HCL [Suspect]
     Indication: TYPE 2 DIABETES MELLITUS
     Dosage: 500 MG (3 IN 1 D), ORAL
     Route: 048
     Dates: start: 20090217
  7. OMEPRAZOLE [Suspect]
     Indication: PRODUCT USED FOR UNKNOWN INDICATION
     Dosage: ORAL
     Route: 048
     Dates: start: 20090217
  8. SENNA [Concomitant]
  9. THIAMINE HCL [Concomitant]

REACTIONS (5)
  - AGITATION [None]
  - COMA SCALE ABNORMAL [None]
  - MULTIPLE DRUG OVERDOSE [None]
  - NEUTROPHIL COUNT INCREASED [None]
  - WHITE BLOOD CELL COUNT INCREASED [None]
